FAERS Safety Report 21747234 (Version 2)
Quarter: 2022Q4

REPORT INFORMATION
  Report Type: Spontaneous
  Country: CA (occurrence: CA)
  Receive Date: 20221219
  Receipt Date: 20221220
  Transmission Date: 20230113
  Serious: Yes (Other)
  Sender: FDA-Public Use
  Company Number: E2B_05721090

PATIENT
  Age: 58 Year
  Sex: Male

DRUGS (5)
  1. INVANZ [Suspect]
     Active Substance: ERTAPENEM SODIUM
     Indication: Arthritis bacterial
     Dosage: UNK
  2. ALLOPURINOL [Suspect]
     Active Substance: ALLOPURINOL
     Indication: Gout
     Dosage: UNK
  3. CEFTRIAXONE [Suspect]
     Active Substance: CEFTRIAXONE
     Indication: Arthritis bacterial
     Dosage: UNK
  4. PENICILLIN V POTASSIUM [Suspect]
     Active Substance: PENICILLIN V POTASSIUM
     Indication: Arthritis bacterial
     Dosage: UNK
  5. SULFASALAZINE [Suspect]
     Active Substance: SULFASALAZINE
     Indication: Rheumatoid arthritis
     Dosage: UNK

REACTIONS (1)
  - Granulomatous dermatitis [Unknown]
